FAERS Safety Report 12940703 (Version 3)
Quarter: 2021Q1

REPORT INFORMATION
  Report Type: Spontaneous
  Country: US (occurrence: US)
  Receive Date: 20161115
  Receipt Date: 20210105
  Transmission Date: 20210419
  Serious: No
  Sender: FDA-Public Use
  Company Number: US-JNJFOC-20161103399

PATIENT
  Age: 15 Year
  Sex: Male

DRUGS (1)
  1. RISPERDAL [Suspect]
     Active Substance: RISPERIDONE
     Indication: BEHAVIOUR DISORDER
     Route: 048
     Dates: start: 2004, end: 2006

REACTIONS (3)
  - Therapy cessation [Unknown]
  - Gynaecomastia [Recovering/Resolving]
  - Abnormal weight gain [Unknown]

NARRATIVE: CASE EVENT DATE: 2005
